FAERS Safety Report 4373698-4 (Version None)
Quarter: 2004Q1

REPORT INFORMATION
  Report Type: 
  Country: None (occurrence: None)
  Receive Date: 20040305
  Receipt Date: 20040107
  Transmission Date: 20041129
  Serious: Yes (Other)
  Sender: FDA-Public Use
  Company Number: 2004UW00272

PATIENT
  Age: 48 Year
  Sex: Male
  Weight: 72.5755 kg

DRUGS (1)
  1. CRESTOR [Suspect]
     Indication: BLOOD CHOLESTEROL INCREASED
     Dosage: 10 MG PO
     Route: 048

REACTIONS (4)
  - HOT FLUSH [None]
  - IRRITABILITY [None]
  - MIGRAINE [None]
  - PARAESTHESIA [None]
